FAERS Safety Report 9632845 (Version 1)
Quarter: 2013Q4

REPORT INFORMATION
  Report Type: Spontaneous
  Country: FR (occurrence: FR)
  Receive Date: 20131018
  Receipt Date: 20131018
  Transmission Date: 20140711
  Serious: Yes (Death, Hospitalization)
  Sender: FDA-Public Use
  Company Number: FR-B.I. PHARMACEUTICALS,INC./RIDGEFIELD-2013-FF-02547FF

PATIENT
  Age: 83 Year
  Sex: Female

DRUGS (2)
  1. PRADAXA [Suspect]
  2. HYPNOVEL [Suspect]
     Indication: SEDATION

REACTIONS (7)
  - Hepatitis fulminant [Fatal]
  - General physical health deterioration [Unknown]
  - Chromaturia [Unknown]
  - Decreased appetite [Unknown]
  - Transaminases increased [Unknown]
  - Prothrombin time shortened [Unknown]
  - Overdose [Unknown]
